FAERS Safety Report 9671912 (Version 2)
Quarter: 2013Q4

REPORT INFORMATION
  Report Type: Spontaneous
  Country: DE (occurrence: DE)
  Receive Date: 20131106
  Receipt Date: 20131202
  Transmission Date: 20140711
  Serious: Yes (Other)
  Sender: FDA-Public Use
  Company Number: DE-BRISTOL-MYERS SQUIBB COMPANY-19689777

PATIENT
  Age: 77 Year
  Sex: Male
  Weight: 90 kg

DRUGS (5)
  1. ELIQUIS [Suspect]
     Indication: ATRIAL FIBRILLATION
     Dates: start: 201303, end: 20130723
  2. TORSEMIDE [Concomitant]
     Indication: CARDIAC FAILURE
     Route: 048
     Dates: start: 20130321
  3. LISINOPRIL + HCTZ [Concomitant]
     Indication: CARDIAC FAILURE
     Dosage: 1 DF: 10/12.5MG
     Route: 048
     Dates: start: 2001
  4. LISINOPRIL + HCTZ [Concomitant]
     Indication: HYPERTENSION
     Dosage: 1 DF: 10/12.5MG
     Route: 048
     Dates: start: 2001
  5. SIMVASTATIN [Concomitant]
     Indication: CORONARY ARTERY DISEASE
     Route: 048
     Dates: start: 201101

REACTIONS (1)
  - Dyspnoea [Recovered/Resolved]
